FAERS Safety Report 12447976 (Version 1)
Quarter: 2016Q2

REPORT INFORMATION
  Report Type: Spontaneous
  Country: US (occurrence: US)
  Receive Date: 20160608
  Receipt Date: 20160608
  Transmission Date: 20160815
  Serious: Yes (Other)
  Sender: FDA-Public Use
  Company Number: US-WATSON-2016-11593

PATIENT
  Age: 21 Year
  Sex: Male

DRUGS (6)
  1. TRETINOIN (WATSON LABORATORIES) [Suspect]
     Active Substance: TRETINOIN
     Indication: ACUTE PROMYELOCYTIC LEUKAEMIA
     Dosage: 45 MG/M2, DAILY
     Route: 065
  2. METHOTREXATE [Concomitant]
     Active Substance: METHOTREXATE
     Indication: ACUTE PROMYELOCYTIC LEUKAEMIA
     Dosage: 12 MG, UNK
     Route: 037
  3. CYTARABINE. [Concomitant]
     Active Substance: CYTARABINE
     Indication: ACUTE PROMYELOCYTIC LEUKAEMIA
     Dosage: 200 MG/M2, DAILY
     Route: 042
  4. CYTARABINE. [Concomitant]
     Active Substance: CYTARABINE
     Dosage: 50 MG, UNK
     Route: 037
  5. IDARUBICIN [Concomitant]
     Active Substance: IDARUBICIN
     Indication: ACUTE PROMYELOCYTIC LEUKAEMIA
     Dosage: 12 MG/M2, DAILY
     Route: 042
  6. HYDROCORTISONE. [Concomitant]
     Active Substance: HYDROCORTISONE
     Indication: ACUTE PROMYELOCYTIC LEUKAEMIA
     Dosage: 50 MG, UNK
     Route: 037

REACTIONS (3)
  - Lip ulceration [Recovered/Resolved]
  - Pyrexia [Recovered/Resolved]
  - Genital ulceration [Recovered/Resolved]
